FAERS Safety Report 21799681 (Version 1)
Quarter: 2022Q4

REPORT INFORMATION
  Report Type: Spontaneous
  Country: US (occurrence: None)
  Receive Date: 20221230
  Receipt Date: 20221230
  Transmission Date: 20230113
  Serious: Yes (Death)
  Sender: FDA-Public Use
  Company Number: None

PATIENT
  Age: 79 Year
  Sex: Female

DRUGS (2)
  1. SILDENAFIL CITRATE [Suspect]
     Active Substance: SILDENAFIL CITRATE
     Indication: Pulmonary arterial hypertension
     Dosage: 60MG THREEE TIMES DAILY BY MOUTH?
     Route: 048
     Dates: start: 20221118, end: 20221203
  2. TYVASO [Suspect]
     Active Substance: TREPROSTINIL

REACTIONS (1)
  - Death [None]

NARRATIVE: CASE EVENT DATE: 20221203
